FAERS Safety Report 21211237 (Version 1)
Quarter: 2022Q3

REPORT INFORMATION
  Report Type: Spontaneous
  Country: US (occurrence: US)
  Receive Date: 20220815
  Receipt Date: 20220815
  Transmission Date: 20221027
  Serious: Yes (Death, Other)
  Sender: FDA-Public Use
  Company Number: US-AMGEN-USASP2022138121

PATIENT

DRUGS (7)
  1. BLINATUMOMAB [Suspect]
     Active Substance: BLINATUMOMAB
     Indication: B-cell unclassifiable lymphoma high grade
     Dosage: UNK
     Route: 065
  2. RITUXIMAB [Concomitant]
     Active Substance: RITUXIMAB
     Indication: B-cell unclassifiable lymphoma high grade
  3. GEMCITABINE [Concomitant]
     Active Substance: GEMCITABINE
     Indication: B-cell unclassifiable lymphoma high grade
  4. VINORELBINE [Concomitant]
     Active Substance: VINORELBINE TARTRATE
     Indication: B-cell unclassifiable lymphoma high grade
  5. DOXORUBICIN [Concomitant]
     Active Substance: DOXORUBICIN
     Indication: B-cell unclassifiable lymphoma high grade
  6. NIVOLUMAB [Concomitant]
     Active Substance: NIVOLUMAB
     Indication: B-cell unclassifiable lymphoma high grade
  7. IBRUTINIB [Concomitant]
     Active Substance: IBRUTINIB
     Indication: B-cell unclassifiable lymphoma high grade

REACTIONS (2)
  - B-cell unclassifiable lymphoma high grade [Fatal]
  - Therapy non-responder [Unknown]
